FAERS Safety Report 16567654 (Version 2)
Quarter: 2020Q3

REPORT INFORMATION
  Report Type: Spontaneous
  Country: CA (occurrence: CA)
  Receive Date: 20190712
  Receipt Date: 20200727
  Transmission Date: 20201102
  Serious: Yes (Other)
  Sender: FDA-Public Use
  Company Number: CA-PFIZER INC-2019298600

PATIENT
  Age: 64 Year
  Sex: Female

DRUGS (1)
  1. PANTOPRAZOLE [Suspect]
     Active Substance: PANTOPRAZOLE
     Dosage: UNK

REACTIONS (6)
  - Abdominal pain [Unknown]
  - Weight decreased [Unknown]
  - Lymphocytosis [Unknown]
  - Coeliac disease [Unknown]
  - Abdominal distension [Unknown]
  - Gastric polyps [Unknown]
